FAERS Safety Report 8866326 (Version 1)
Quarter: 2012Q4

REPORT INFORMATION
  Report Type: 
  Country: US (occurrence: US)
  Receive Date: 20121025
  Receipt Date: 20121025
  Transmission Date: 20130627
  Serious: Yes (Other)
  Sender: FDA-Public Use
  Company Number: GXBR2012US002204

PATIENT
  Age: 76 Year
  Sex: Male

DRUGS (5)
  1. LORATADINE [Suspect]
     Indication: MULTIPLE ALLERGIES
     Dosage: 10 mg, QD
     Route: 048
  2. BAYER ASPIRIN [Suspect]
     Indication: TRANSIENT ISCHAEMIC ATTACK
     Dosage: 81 mg, QD
     Dates: start: 2008
  3. ASPIRIN ^BAYER^ [Suspect]
     Indication: TRANSIENT ISCHAEMIC ATTACK
     Dosage: UNK mg, QD
     Dates: start: 2008
  4. PLAVIX [Concomitant]
     Indication: TRANSIENT ISCHAEMIC ATTACK
     Dosage: UNK mg, UNK
     Dates: start: 2006
  5. FISH OIL [Concomitant]
     Dosage: UNK DF, UNK

REACTIONS (2)
  - Perforated ulcer [Not Recovered/Not Resolved]
  - Haemorrhage [Recovered/Resolved]
